FAERS Safety Report 13876797 (Version 1)
Quarter: 2017Q3

REPORT INFORMATION
  Report Type: Spontaneous
  Country: US (occurrence: None)
  Receive Date: 20170814
  Receipt Date: 20170814
  Transmission Date: 20171127
  Serious: No
  Sender: FDA-Public Use
  Company Number: None

PATIENT
  Age: 61 Year
  Sex: Female

DRUGS (1)
  1. CUVITRU [Suspect]
     Active Substance: HUMAN IMMUNOGLOBULIN G
     Indication: IMMUNODEFICIENCY COMMON VARIABLE
     Dosage: 30 GRAMS (150 ML) EVERY 2 WEEKS, SUBCUTANEOUSLY
     Route: 058
     Dates: start: 20170114

REACTIONS (4)
  - Diarrhoea [None]
  - Fatigue [None]
  - Migraine [None]
  - Infection [None]

NARRATIVE: CASE EVENT DATE: 20170714
